FAERS Safety Report 4985998-5 (Version None)
Quarter: 2006Q2

REPORT INFORMATION
  Report Type: 
  Country: None (occurrence: None)
  Receive Date: 20060418
  Receipt Date: 20060202
  Transmission Date: 20061013
  Serious: Yes (Hospitalization)
  Sender: FDA-Public Use
  Company Number: 2006BH007392

PATIENT
  Age: 22 Year
  Sex: Male
  Weight: 69.8539 kg

DRUGS (1)
  1. ANTICOAGULANT SODIUM CITRATE SOLUTION 250 ML [Suspect]
     Indication: PLASMAPHERESIS
     Dosage: IV
     Route: 042
     Dates: start: 20060206, end: 20060206

REACTIONS (13)
  - CONVULSION [None]
  - DEVICE FAILURE [None]
  - DIZZINESS [None]
  - FALL [None]
  - HEAD INJURY [None]
  - HEADACHE [None]
  - LOSS OF CONSCIOUSNESS [None]
  - MEDICATION ERROR [None]
  - ORAL INTAKE REDUCED [None]
  - PROCEDURAL COMPLICATION [None]
  - PROCEDURAL PAIN [None]
  - SKIN LACERATION [None]
  - SYNCOPE VASOVAGAL [None]
